FAERS Safety Report 4417703-5 (Version None)
Quarter: 2004Q2

REPORT INFORMATION
  Report Type: 
  Country: None (occurrence: None)
  Receive Date: 20040621
  Receipt Date: 20040322
  Transmission Date: 20050107
  Serious: Yes (Other)
  Sender: FDA-Public Use
  Company Number: PHEH2004US03341

PATIENT
  Age: 79 Year
  Sex: Male

DRUGS (2)
  1. ZOMETA [Suspect]
     Indication: MULTIPLE MYELOMA
     Dosage: 4 MG, QMO, INTRAVENOUS
     Route: 042
     Dates: start: 20020103, end: 20031211
  2. THALIDOMIDE (THALIDOMIDE) [Concomitant]

REACTIONS (3)
  - ABSCESS [None]
  - ABSCESS DRAINAGE [None]
  - OSTEONECROSIS [None]
